FAERS Safety Report 6977280-1 (Version None)
Quarter: 2010Q3

REPORT INFORMATION
  Report Type: 
  Country: None (occurrence: None)
  Receive Date: 20100910
  Receipt Date: 20100901
  Transmission Date: 20110219
  Serious: Yes (Other)
  Sender: FDA-Public Use
  Company Number: CH-WYE-G06609110

PATIENT
  Age: 29 Year
  Sex: Male

DRUGS (4)
  1. EFFEXOR [Suspect]
     Indication: DEPRESSION
     Dosage: 75 MG DAILY THEN INCREASED TO 150 MG DAILY
     Route: 048
     Dates: start: 20090801, end: 20100423
  2. LORAZEPAM [Concomitant]
     Dosage: DOSE AND FREQUENCY UNKNOWN
     Route: 048
  3. XANAX [Concomitant]
     Dosage: DOSE AND FREQUENCY UNKNOWN
     Route: 048
  4. SOLIAN [Interacting]
     Indication: SCHIZOTYPAL PERSONALITY DISORDER
     Route: 048
     Dates: start: 20091201, end: 20100301

REACTIONS (2)
  - DRUG INTERACTION [None]
  - WEIGHT INCREASED [None]
